FAERS Safety Report 16745172 (Version 11)
Quarter: 2024Q2

REPORT INFORMATION
  Report Type: Spontaneous
  Country: US (occurrence: US)
  Receive Date: 20190827
  Receipt Date: 20240405
  Transmission Date: 20240716
  Serious: Yes (Hospitalization, Other)
  Sender: FDA-Public Use
  Company Number: US-PFIZER INC-2018445511

PATIENT
  Age: 67 Year
  Sex: Female
  Weight: 95 kg

DRUGS (8)
  1. XELJANZ [Suspect]
     Active Substance: TOFACITINIB CITRATE
     Indication: Crohn^s disease
     Dosage: 10 MG, 2X/DAY
     Route: 048
     Dates: start: 20190106
  2. XELJANZ [Suspect]
     Active Substance: TOFACITINIB CITRATE
     Indication: Colitis ulcerative
     Dosage: 10 MG, 2X/DAY
     Route: 048
  3. XELJANZ [Suspect]
     Active Substance: TOFACITINIB CITRATE
     Dosage: 15 MG, DAILY (10 MG IN AM AND 5 MG IN PM), 15 MG DAILY DIVIDED BID
     Route: 048
     Dates: start: 20220919
  4. XELJANZ [Suspect]
     Active Substance: TOFACITINIB CITRATE
     Dosage: 15 MG, DAILY (5 MG 1 TAB PO QAM AND 2 TABS PO QPM (15 MG TOTAL PER DAY))
     Route: 048
  5. XELJANZ [Suspect]
     Active Substance: TOFACITINIB CITRATE
     Dosage: 5 MG
  6. STELARA [Concomitant]
     Active Substance: USTEKINUMAB
     Dosage: UNK
  7. METFORMIN [Concomitant]
     Active Substance: METFORMIN HYDROCHLORIDE
     Indication: Diabetes mellitus
     Dosage: UNK, 2X/DAY
     Route: 048
     Dates: start: 2018
  8. HYDROCHLOROTHIAZIDE\LOSARTAN [Concomitant]
     Active Substance: HYDROCHLOROTHIAZIDE\LOSARTAN
     Indication: Hypertension
     Dosage: UNK (50/12.5 MG)
     Route: 048
     Dates: start: 2006

REACTIONS (6)
  - Perirectal abscess [Not Recovered/Not Resolved]
  - Anal abscess [Unknown]
  - Off label use [Unknown]
  - Fistula [Unknown]
  - Anorectal disorder [Unknown]
  - Proctitis [Unknown]

NARRATIVE: CASE EVENT DATE: 20191001
